FAERS Safety Report 8766123 (Version 2)
Quarter: 2012Q4

REPORT INFORMATION
  Report Type: Report from Study
  Country: CZ (occurrence: CZ)
  Receive Date: 20120904
  Receipt Date: 20120911
  Transmission Date: 20130627
  Serious: Yes (Hospitalization, Other)
  Sender: FDA-Public Use
  Company Number: CZ-ROCHE-1108711

PATIENT
  Age: 68 Year
  Sex: Female

DRUGS (3)
  1. RANIBIZUMAB [Suspect]
     Indication: AGE-RELATED MACULAR DEGENERATION
     Route: 050
  2. RANIBIZUMAB [Suspect]
     Route: 065
     Dates: start: 20120201
  3. RANIBIZUMAB [Suspect]
     Route: 065
     Dates: start: 20120321

REACTIONS (8)
  - Eye infection intraocular [Unknown]
  - Endophthalmitis [Unknown]
  - Choroidal neovascularisation [Unknown]
  - Cataract nuclear [Unknown]
  - Vitreous floaters [Unknown]
  - Visual acuity reduced [Unknown]
  - Eye pain [Unknown]
  - Photophobia [Unknown]
